FAERS Safety Report 6973452-0 (Version None)
Quarter: 2010Q3

REPORT INFORMATION
  Report Type: 
  Country: None (occurrence: None)
  Receive Date: 20100909
  Receipt Date: 20100902
  Transmission Date: 20110219
  Serious: Yes (Hospitalization)
  Sender: FDA-Public Use
  Company Number: CA-MERCK-1009USA00329

PATIENT
  Age: 69 Year
  Sex: Male
  Weight: 82 kg

DRUGS (8)
  1. ZETIA [Suspect]
     Route: 048
  2. ALTACE [Concomitant]
     Route: 048
  3. BISOPROLOL COMP [Concomitant]
     Route: 065
  4. PMS ASA [Concomitant]
     Route: 048
  5. LASIX [Concomitant]
     Route: 048
  6. LOPID [Suspect]
     Route: 048
  7. METFORMIN [Concomitant]
     Route: 048
  8. PARIET [Concomitant]
     Route: 048

REACTIONS (2)
  - DEHYDRATION [None]
  - PANCREATITIS ACUTE [None]
